FAERS Safety Report 4374741-9 (Version None)
Quarter: 2004Q2

REPORT INFORMATION
  Report Type: 
  Country: None (occurrence: None)
  Receive Date: 20040604
  Receipt Date: 20040419
  Transmission Date: 20050107
  Serious: Yes (Other)
  Sender: FDA-Public Use
  Company Number: FR-JNJFOC-20040404032

PATIENT
  Age: 14 Year
  Sex: Male

DRUGS (1)
  1. RISPERDAL [Suspect]
     Indication: DRUG USE FOR UNKNOWN INDICATION
     Dosage: SEE IMAGE
     Route: 048

REACTIONS (3)
  - BLOOD BILIRUBIN UNCONJUGATED INCREASED [None]
  - COAGULATION FACTOR V LEVEL DECREASED [None]
  - PROTHROMBIN TIME SHORTENED [None]
